FAERS Safety Report 5015105-4 (Version None)
Quarter: 2006Q2

REPORT INFORMATION
  Report Type: 
  Country: None (occurrence: None)
  Receive Date: 20060414
  Receipt Date: 20060109
  Transmission Date: 20061013
  Serious: No
  Sender: FDA-Public Use
  Company Number: 2005SP000188

PATIENT
  Age: 80 Year
  Sex: Male
  Weight: 79.3795 kg

DRUGS (11)
  1. LUNESTA [Suspect]
     Indication: INSOMNIA
     Dosage: 1 MG;HS;ORAL    : 2 MG;HS;ORAL
     Route: 048
     Dates: start: 20050301, end: 20051001
  2. LUNESTA [Suspect]
     Indication: INSOMNIA
     Dosage: 1 MG;HS;ORAL    : 2 MG;HS;ORAL
     Route: 048
     Dates: start: 20051001
  3. FLOMAX [Concomitant]
  4. PROSCAR [Concomitant]
  5. DIOVAN HCT [Concomitant]
  6. SIMVASTATIN [Concomitant]
  7. AMLODIPINE [Concomitant]
  8. AMARYL [Concomitant]
  9. PLAVIX [Concomitant]
  10. ACETYLSALICYLIC ACID SRT [Concomitant]
  11. MULTIVITAMIN [Concomitant]

REACTIONS (2)
  - MIDDLE INSOMNIA [None]
  - POLLAKIURIA [None]
